FAERS Safety Report 7204106-3 (Version None)
Quarter: 2010Q4

REPORT INFORMATION
  Report Type: 
  Country: None (occurrence: None)
  Receive Date: 20101230
  Receipt Date: 20101223
  Transmission Date: 20110411
  Serious: Yes (Other)
  Sender: FDA-Public Use
  Company Number: BR-PFIZER INC-2010105719

PATIENT
  Age: 54 Year
  Sex: Female
  Weight: 68 kg

DRUGS (12)
  1. CHAMPIX [Suspect]
     Indication: TOBACCO USER
     Dosage: UNK
     Route: 048
     Dates: start: 20100101, end: 20101023
  2. TOPAMAX [Interacting]
     Indication: DECREASED APPETITE
     Dosage: UNK
  3. MYCOPHENOLATE MOFETIL [Concomitant]
     Indication: SYSTEMIC LUPUS ERYTHEMATOSUS
     Dosage: 300 MG, 2X/DAY
     Dates: start: 20040101
  4. NEURONTIN [Concomitant]
     Indication: FIBROMYALGIA
     Dosage: 300 MG, 1 IN THE MORNING AND 2 AT NIGHT
     Dates: start: 20040101
  5. OMEPRAZOLE [Concomitant]
     Indication: GASTRIC DISORDER
     Dosage: 40 MG, 2X/DAY
  6. FLUOXETINE [Concomitant]
     Indication: DEPRESSION
     Dosage: 20 MG, 1X/DAY
     Dates: start: 20100701
  7. SEROQUEL [Concomitant]
     Indication: DEPRESSION
     Dosage: 300 MG, 1X/DAY, AT NIGHT
     Dates: start: 20000101
  8. RIVOTRIL [Concomitant]
     Indication: INSOMNIA
     Dosage: 4 MG, 1X/DAY, AT NIGHT
  9. LIPITOR [Concomitant]
     Indication: BLOOD CHOLESTEROL INCREASED
     Dosage: 10 MG, UNK
     Dates: start: 20100501
  10. WELLBUTRIN [Concomitant]
     Dosage: 150 MG, 2X/DAY
     Dates: start: 20100801
  11. ZYBAN [Concomitant]
     Dosage: 150 MG, 2X/DAY
     Dates: start: 20100701, end: 20100731
  12. COUMADIN [Concomitant]
     Indication: ANTICOAGULANT THERAPY
     Dosage: 2.5 MG, UNK
     Dates: start: 20100801

REACTIONS (5)
  - BONE INFARCTION [None]
  - DRUG INTERACTION [None]
  - HALLUCINATION [None]
  - MEMORY IMPAIRMENT [None]
  - WEIGHT INCREASED [None]
